FAERS Safety Report 26197158 (Version 1)
Quarter: 2025Q4

REPORT INFORMATION
  Report Type: Spontaneous
  Country: DO (occurrence: DO)
  Receive Date: 20251224
  Receipt Date: 20251224
  Transmission Date: 20260118
  Serious: Yes (Other)
  Sender: ALKEM
  Company Number: DO-ALKEM LABORATORIES LIMITED-DO-ALKEM-2025-13376

PATIENT
  Age: 37 Year
  Sex: Male

DRUGS (13)
  1. CARBAMAZEPINE [Suspect]
     Active Substance: CARBAMAZEPINE
     Indication: Epilepsy
     Dosage: 400 MILLIGRAM (TEGRETOL)
     Route: 065
  2. ALBUTEROL\IPRATROPIUM [Concomitant]
     Active Substance: ALBUTEROL\IPRATROPIUM
     Indication: Product used for unknown indication
     Dosage: UNK (1 AMPOULE)
     Route: 065
  3. ALBUTEROL\IPRATROPIUM [Concomitant]
     Active Substance: ALBUTEROL\IPRATROPIUM
     Dosage: UNK
     Route: 065
  4. BRIVARACETAM [Concomitant]
     Active Substance: BRIVARACETAM
     Indication: Product used for unknown indication
     Dosage: 100 MILLIGRAM, BID
     Route: 065
  5. BRIVARACETAM [Concomitant]
     Active Substance: BRIVARACETAM
     Dosage: 100 MILLIGRAM, BID
     Route: 048
  6. BUDESONIDE [Concomitant]
     Active Substance: BUDESONIDE
     Indication: Product used for unknown indication
     Dosage: 0.75 MILLIGRAM, BID
     Route: 065
  7. BUDESONIDE [Concomitant]
     Active Substance: BUDESONIDE
     Dosage: UNK
     Route: 065
  8. CLOBAZAM [Concomitant]
     Active Substance: CLOBAZAM
     Indication: Product used for unknown indication
     Dosage: 10 MILLIGRAM (2.5 TABLETS DAILY)
     Route: 065
  9. CLOBAZAM [Concomitant]
     Active Substance: CLOBAZAM
     Dosage: 10 MILLIGRAM, HS (2.5 TABLETS DAILY)
     Route: 048
  10. DIVALPROEX SODIUM [Concomitant]
     Active Substance: DIVALPROEX SODIUM
     Indication: Product used for unknown indication
     Dosage: 500 MILLIGRAM (2.5 TABLETS DAILY)
     Route: 065
  11. DIVALPROEX SODIUM [Concomitant]
     Active Substance: DIVALPROEX SODIUM
     Dosage: 500 MILLIGRAM, BID
     Route: 048
  12. ESCITALOPRAM [Concomitant]
     Active Substance: ESCITALOPRAM OXALATE
     Indication: Product used for unknown indication
     Dosage: 20 MILLIGRAM, QD
     Route: 065
  13. FELBAMATE [Concomitant]
     Active Substance: FELBAMATE
     Indication: Product used for unknown indication
     Dosage: 400 MILLIGRAM (5.5 TABLETS DAILY).
     Route: 065

REACTIONS (15)
  - Acute respiratory distress syndrome [Unknown]
  - Depressed level of consciousness [Unknown]
  - Haematotoxicity [Unknown]
  - Seizure [Unknown]
  - Cytopenia [Unknown]
  - Toxicity to various agents [Unknown]
  - Respiratory symptom [Unknown]
  - Dysarthria [Unknown]
  - Haematology test abnormal [Unknown]
  - Dehydration [Unknown]
  - Somnolence [Unknown]
  - Ataxia [Unknown]
  - Vomiting [Unknown]
  - Confusional state [Unknown]
  - Product substitution error [Unknown]
